FAERS Safety Report 18741918 (Version 1)
Quarter: 2021Q1

REPORT INFORMATION
  Report Type: Spontaneous
  Country: CA (occurrence: CA)
  Receive Date: 20210114
  Receipt Date: 20210114
  Transmission Date: 20210419
  Serious: Yes (Other)
  Sender: FDA-Public Use
  Company Number: CA-FRESENIUS KABI-FK202100383

PATIENT
  Sex: Male

DRUGS (7)
  1. FILGRASTIM [Concomitant]
     Active Substance: FILGRASTIM
     Indication: PRODUCT USED FOR UNKNOWN INDICATION
     Route: 065
  2. BLEOMYCIN [Suspect]
     Active Substance: BLEOMYCIN SULFATE
     Indication: GERM CELL CANCER METASTATIC
     Dosage: BLEOMYCIN SULPHATE FOR INJECTION USP
     Route: 065
  3. IFOSFAMIDE (MANUFACTURER UNKNOWN) [Suspect]
     Active Substance: IFOSFAMIDE
     Indication: GERM CELL CANCER METASTATIC
     Dosage: IFOSFAMIDE FOR INJECTION, USP
     Route: 065
  4. PACLITAXEL. [Suspect]
     Active Substance: PACLITAXEL
     Indication: PRODUCT USED FOR UNKNOWN INDICATION
     Dosage: PACLITAXEL INJECTION
     Route: 065
  5. ETOPOSIDE (MANUFACTURER UNKNOWN) [Suspect]
     Active Substance: ETOPOSIDE
     Indication: GERM CELL CANCER METASTATIC
     Route: 065
  6. CISPLATIN. [Suspect]
     Active Substance: CISPLATIN
     Indication: GERM CELL CANCER METASTATIC
     Dosage: CISPLATIN INJECTION
     Route: 065
  7. OXALIPLATIN. [Suspect]
     Active Substance: OXALIPLATIN
     Indication: GERM CELL CANCER METASTATIC
     Route: 065

REACTIONS (7)
  - Clostridium difficile colitis [Unknown]
  - Escherichia bacteraemia [Unknown]
  - Neutropenic colitis [Unknown]
  - Neutropenic sepsis [Unknown]
  - Tumour lysis syndrome [Unknown]
  - Multiple organ dysfunction syndrome [Unknown]
  - Product use in unapproved indication [Unknown]
